FAERS Safety Report 13614040 (Version 1)
Quarter: 2017Q2

REPORT INFORMATION
  Report Type: Spontaneous
  Country: US (occurrence: US)
  Receive Date: 20170606
  Receipt Date: 20170606
  Transmission Date: 20170830
  Serious: No
  Sender: FDA-Public Use
  Company Number: US-ALVOGEN-2017-ALVOGEN-091860

PATIENT
  Age: 62 Year
  Sex: Male

DRUGS (3)
  1. RIVASTIGMINE. [Suspect]
     Active Substance: RIVASTIGMINE
     Indication: AMNESIA
     Route: 062
     Dates: start: 20160118, end: 201702
  2. RIVASTIGMINE. [Suspect]
     Active Substance: RIVASTIGMINE
     Indication: AMNESIA
     Route: 062
     Dates: start: 20160118, end: 201702
  3. RIVASTIGMINE. [Suspect]
     Active Substance: RIVASTIGMINE
     Indication: AMNESIA
     Route: 062
     Dates: start: 20160118, end: 201702

REACTIONS (5)
  - Underdose [Unknown]
  - Product use issue [Unknown]
  - Product adhesion issue [Unknown]
  - Drug administration error [Unknown]
  - Drug ineffective [Unknown]

NARRATIVE: CASE EVENT DATE: 201601
